FAERS Safety Report 16419166 (Version 1)
Quarter: 2019Q2

REPORT INFORMATION
  Report Type: Spontaneous
  Country: GB (occurrence: GB)
  Receive Date: 20190612
  Receipt Date: 20190612
  Transmission Date: 20190711
  Serious: Yes (Hospitalization)
  Sender: FDA-Public Use
  Company Number: GB-ACCORD-131968

PATIENT
  Age: 51 Year
  Sex: Female

DRUGS (2)
  1. TOPOTECAN [Suspect]
     Active Substance: TOPOTECAN HYDROCHLORIDE
     Indication: CERVIX CARCINOMA STAGE IV
     Dosage: 0.75 MG M2 DAY1 I.V. ON DAY 1, 2 AND 3
     Route: 042
  2. CISPLATIN. [Suspect]
     Active Substance: CISPLATIN
     Indication: CERVIX CARCINOMA STAGE IV
     Dosage: THREE-WEEKLY CYCLES OF?CISPLATIN 50 MG M2 I.V. ON DAY 1
     Route: 042

REACTIONS (2)
  - Febrile neutropenia [Recovered/Resolved]
  - Aortitis [Recovered/Resolved]
